FAERS Safety Report 13263985 (Version 1)
Quarter: 2017Q1

REPORT INFORMATION
  Report Type: Spontaneous
  Country: US (occurrence: US)
  Receive Date: 20170222
  Receipt Date: 20170222
  Transmission Date: 20170428
  Serious: Yes (Hospitalization)
  Sender: FDA-Public Use
  Company Number: None

PATIENT
  Age: 66 Year
  Sex: Male
  Weight: 66.5 kg

DRUGS (3)
  1. COPANLISIB [Suspect]
     Active Substance: COPANLISIB
  2. GEMCITABINE [Concomitant]
     Active Substance: GEMCITABINE\GEMCITABINE HYDROCHLORIDE
  3. CISPLATIN. [Concomitant]
     Active Substance: CISPLATIN

REACTIONS (3)
  - Escherichia bacteraemia [None]
  - Drug dose omission [None]
  - Cholangitis [None]

NARRATIVE: CASE EVENT DATE: 20170126
